FAERS Safety Report 21716625 (Version 1)
Quarter: 2022Q4

REPORT INFORMATION
  Report Type: Other
  Country: US (occurrence: US)
  Receive Date: 20221212
  Receipt Date: 20221212
  Transmission Date: 20230112
  Serious: No
  Sender: FDA-Public Use
  Company Number: US-Global Blood Therapeutics Inc-US-GBT-22-00285

PATIENT
  Age: 51 Year
  Sex: Female
  Weight: 70.307 kg

DRUGS (12)
  1. OXBRYTA [Suspect]
     Active Substance: VOXELOTOR
     Indication: Sickle cell disease
     Route: 048
     Dates: start: 20211227, end: 20220110
  2. VITAMIN D [Concomitant]
     Active Substance: VITAMIN D NOS
  3. LASIX [Concomitant]
     Active Substance: FUROSEMIDE
  4. NORVASC [Concomitant]
     Active Substance: AMLODIPINE BESYLATE
  5. PEPCID [Concomitant]
     Active Substance: FAMOTIDINE
  6. PROCRIT [Concomitant]
     Active Substance: ERYTHROPOIETIN
  7. VITAMIN C [Concomitant]
     Active Substance: ASCORBIC ACID
  8. DEPAKOTE [Concomitant]
     Active Substance: DIVALPROEX SODIUM
  9. COMPAZINE [Concomitant]
     Active Substance: PROCHLORPERAZINE MALEATE
  10. FOLIC ACID [Concomitant]
     Active Substance: FOLIC ACID
  11. VITAMIN B12 [Concomitant]
     Active Substance: CYANOCOBALAMIN
  12. SUBOXONE [Concomitant]
     Active Substance: BUPRENORPHINE HYDROCHLORIDE\NALOXONE HYDROCHLORIDE

REACTIONS (6)
  - Rash pruritic [Recovered/Resolved]
  - Pruritus [Recovered/Resolved]
  - Urticaria [Recovered/Resolved]
  - Hypersensitivity [Recovered/Resolved]
  - Therapy cessation [Unknown]
  - Skin irritation [Recovered/Resolved]

NARRATIVE: CASE EVENT DATE: 20211201
